FAERS Safety Report 12094012 (Version 1)
Quarter: 2016Q1

REPORT INFORMATION
  Report Type: Spontaneous
  Country: JP (occurrence: JP)
  Receive Date: 20160219
  Receipt Date: 20160219
  Transmission Date: 20160526
  Serious: Yes (Death)
  Sender: FDA-Public Use
  Company Number: JP-ACTELION-A-CH2016-131434

PATIENT
  Age: 68 Year
  Sex: Male

DRUGS (5)
  1. OPSUMIT [Suspect]
     Active Substance: MACITENTAN
     Indication: PULMONARY HYPERTENSION
     Dosage: 10 MG, QD
     Route: 048
     Dates: start: 20151110, end: 20151115
  2. OXYGEN. [Concomitant]
     Active Substance: OXYGEN
  3. MELOXICAM. [Concomitant]
     Active Substance: MELOXICAM
  4. IGURATIMOD [Concomitant]
     Active Substance: IGURATIMOD
  5. SILDENAFIL. [Suspect]
     Active Substance: SILDENAFIL
     Indication: PULMONARY HYPERTENSION
     Dosage: 60 MG, TID
     Route: 048
     Dates: start: 20150903, end: 20151115

REACTIONS (3)
  - Emphysema [Fatal]
  - Interstitial lung disease [Fatal]
  - Lung disorder [Fatal]

NARRATIVE: CASE EVENT DATE: 20151115
